FAERS Safety Report 17138226 (Version 1)
Quarter: 2019Q4

REPORT INFORMATION
  Report Type: Spontaneous
  Country: US (occurrence: US)
  Receive Date: 20191119
  Receipt Date: 20191119
  Transmission Date: 20200122
  Serious: Yes (Hospitalization)
  Sender: FDA-Public Use
  Company Number: None

PATIENT
  Age: 60 Year
  Sex: Male
  Weight: 72 kg

DRUGS (8)
  1. TAXOL [Suspect]
     Active Substance: PACLITAXEL
     Dates: start: 20190716, end: 20190717
  2. CISPLATIN (119875) [Suspect]
     Active Substance: CISPLATIN
     Dates: start: 20190716, end: 20190720
  3. FORTECORTIN [Concomitant]
     Active Substance: DEXAMETHASONE
  4. SOLU-MEDROL [Concomitant]
     Active Substance: METHYLPREDNISOLONE SODIUM SUCCINATE
  5. IFOSFAMIDE. [Suspect]
     Active Substance: IFOSFAMIDE
     Dates: start: 20190716, end: 20190720
  6. EMEND [Concomitant]
     Active Substance: APREPITANT
  7. MEPHAMASON [Concomitant]
  8. G-CSF (FILGRASTIM, AMGEN) [Suspect]
     Active Substance: FILGRASTIM
     Dates: start: 20190716, end: 20190722

REACTIONS (7)
  - Nausea [None]
  - Neutropenia [None]
  - Staphylococcal bacteraemia [None]
  - Aplasia [None]
  - Chills [None]
  - Malaise [None]
  - Febrile bone marrow aplasia [None]

NARRATIVE: CASE EVENT DATE: 20190725
